FAERS Safety Report 7122482-7 (Version None)
Quarter: 2010Q4

REPORT INFORMATION
  Report Type: 
  Country: None (occurrence: None)
  Receive Date: 20101122
  Receipt Date: 20101122
  Transmission Date: 20110411
  Serious: Yes (Hospitalization)
  Sender: FDA-Public Use
  Company Number: None

PATIENT
  Sex: Female
  Weight: 62.1 kg

DRUGS (10)
  1. CARBOPLATIN [Suspect]
     Dosage: 585 MG
     Dates: end: 20100922
  2. TAXOL [Suspect]
     Dosage: 135 MG
     Dates: end: 20100929
  3. COMPAZINE [Concomitant]
  4. GRANISETRON HCL [Concomitant]
  5. IMITREX [Concomitant]
  6. LORAZEPAM [Concomitant]
  7. OXYCONTIN [Concomitant]
  8. PERCOCET [Concomitant]
  9. PHENERGAN [Concomitant]
  10. ZOFRAN [Concomitant]

REACTIONS (8)
  - CONSTIPATION [None]
  - DECREASED APPETITE [None]
  - HYDRONEPHROSIS [None]
  - HYPOKALAEMIA [None]
  - NAUSEA [None]
  - PANCYTOPENIA [None]
  - THROMBOCYTOPENIA [None]
  - VOMITING [None]
